FAERS Safety Report 15232641 (Version 3)
Quarter: 2019Q1

REPORT INFORMATION
  Report Type: Spontaneous
  Country: US (occurrence: US)
  Receive Date: 20180802
  Receipt Date: 20190114
  Transmission Date: 20190417
  Serious: Yes (Hospitalization)
  Sender: FDA-Public Use
  Company Number: US-OTSUKA-2018_016305

PATIENT
  Age: 48 Year
  Sex: Female

DRUGS (1)
  1. ABILIFY [Suspect]
     Active Substance: ARIPIPRAZOLE
     Indication: MAJOR DEPRESSION
     Dosage: 20 MG, QD
     Route: 065
     Dates: start: 200501, end: 201712

REACTIONS (12)
  - Unintended pregnancy [Unknown]
  - Gambling disorder [Recovered/Resolved]
  - Obsessive-compulsive disorder [Recovered/Resolved]
  - Eating disorder [Recovered/Resolved]
  - Compulsive hoarding [Recovered/Resolved]
  - Economic problem [Unknown]
  - Bankruptcy [Unknown]
  - Loss of employment [Unknown]
  - Homeless [Unknown]
  - Mental disorder [Unknown]
  - Binge eating [Unknown]
  - Compulsive shopping [Recovered/Resolved]
